FAERS Safety Report 17162791 (Version 1)
Quarter: 2019Q4

REPORT INFORMATION
  Report Type: Spontaneous
  Country: US (occurrence: US)
  Receive Date: 20191216
  Receipt Date: 20191216
  Transmission Date: 20200122
  Serious: Yes (Death)
  Sender: FDA-Public Use
  Company Number: None

PATIENT
  Age: 90 Year
  Sex: Male

DRUGS (7)
  1. ALLOPURINOL TAB 300MG [Concomitant]
     Dates: start: 20180523, end: 20191129
  2. LUCENTIS [Suspect]
     Active Substance: RANIBIZUMAB
     Indication: NEOVASCULAR AGE-RELATED MACULAR DEGENERATION
     Dosage: ?          OTHER FREQUENCY:EVERY 8 WKS AS DIR;?
     Route: 021
     Dates: start: 20180524, end: 20191129
  3. ATORVASTATIN TAB 10MG [Concomitant]
     Dates: start: 20180523, end: 20191129
  4. LANTUS SOLOSTAR [Concomitant]
     Active Substance: INSULIN GLARGINE
     Dates: start: 20180523, end: 20191129
  5. INVOKANA TAB 100MG [Concomitant]
     Dates: start: 20180523, end: 20191129
  6. CARIA XT CAP 120/24HR [Concomitant]
     Dates: start: 20180523, end: 20191129
  7. FINASTERIDE TAB 5MG [Concomitant]
     Dates: start: 20180523, end: 20191129

REACTIONS (1)
  - Death [None]

NARRATIVE: CASE EVENT DATE: 20191129
